FAERS Safety Report 9590027 (Version 1)
Quarter: 2013Q4

REPORT INFORMATION
  Report Type: Spontaneous
  Country: US (occurrence: US)
  Receive Date: 20131003
  Receipt Date: 20131003
  Transmission Date: 20140711
  Serious: No
  Sender: FDA-Public Use
  Company Number: US-AMGEN-USASP2012073535

PATIENT
  Age: 76 Year
  Sex: Female
  Weight: 54.42 kg

DRUGS (13)
  1. ENBREL [Suspect]
     Indication: RHEUMATOID ARTHRITIS
     Dosage: 50 MG, QWK
     Route: 058
     Dates: start: 200710
  2. METHOTREXATE [Concomitant]
     Dosage: UNK
  3. METOPROLOL [Concomitant]
     Dosage: UNK
  4. RECLAST [Concomitant]
     Dosage: UNK
  5. LISOPRIL [Concomitant]
     Dosage: UNK
  6. VICODIN [Concomitant]
     Dosage: UNK
  7. POTASSIUM [Concomitant]
     Dosage: UNK
  8. CITALOPRAM [Concomitant]
     Dosage: UNK
  9. VITAMIN D                          /00107901/ [Concomitant]
  10. ACYCLOVIR                          /00587301/ [Concomitant]
     Dosage: UNK
  11. FOLIC ACID [Concomitant]
     Dosage: UNK
  12. PRILOSEC                           /00661201/ [Concomitant]
     Dosage: UNK
  13. TYLENOL                            /00020001/ [Concomitant]
     Dosage: UNK

REACTIONS (1)
  - Oral pain [Not Recovered/Not Resolved]
